FAERS Safety Report 9995842 (Version 2)
Quarter: 2014Q2

REPORT INFORMATION
  Report Type: Spontaneous
  Country: PT (occurrence: PT)
  Receive Date: 20140311
  Receipt Date: 20140421
  Transmission Date: 20141212
  Serious: Yes (Hospitalization)
  Sender: FDA-Public Use
  Company Number: PT-BAYER-2014-032387

PATIENT
  Age: 23 Year
  Sex: Female

DRUGS (1)
  1. GINO-CANESTEN COMPR. VAGINAIS [Suspect]
     Indication: VULVOVAGINAL MYCOTIC INFECTION
     Dosage: 500 MG, UNK
     Route: 067

REACTIONS (4)
  - Abdominal pain [Recovered/Resolved]
  - Foreign body [Recovered/Resolved]
  - Rash macular [Recovered/Resolved]
  - Abdominal distension [Recovered/Resolved]
